FAERS Safety Report 20838205 (Version 1)
Quarter: 2022Q2

REPORT INFORMATION
  Report Type: Spontaneous
  Country: US (occurrence: US)
  Receive Date: 20220517
  Receipt Date: 20220517
  Transmission Date: 20220721
  Serious: No
  Sender: FDA-Public Use
  Company Number: US-ALLERGAN-2208751US

PATIENT
  Sex: Female
  Weight: 54.422 kg

DRUGS (1)
  1. KYBELLA [Suspect]
     Active Substance: DEOXYCHOLIC ACID
     Indication: Product used for unknown indication
     Dosage: UNK, SINGLE 1 VIAL
     Route: 058
     Dates: start: 20211214, end: 20211214

REACTIONS (2)
  - Nodule [Recovering/Resolving]
  - Swelling [Recovering/Resolving]
